FAERS Safety Report 5190435-4 (Version None)
Quarter: 2006Q4

REPORT INFORMATION
  Report Type: 
  Country: None (occurrence: None)
  Receive Date: 20061222
  Receipt Date: 20061215
  Transmission Date: 20070319
  Serious: Yes (Hospitalization)
  Sender: FDA-Public Use
  Company Number: FR-ELI_LILLY_AND_COMPANY-FR200612002626

PATIENT
  Age: 79 Year
  Sex: Male
  Weight: 68 kg

DRUGS (5)
  1. PROZAC [Suspect]
     Dosage: 20 MG, DAILY (1/D)
     Route: 048
     Dates: end: 20060801
  2. PREVISCAN [Interacting]
     Indication: TACHYARRHYTHMIA
     Dosage: 15 MG, DAILY (1/D)
     Route: 048
  3. OGAST [Interacting]
     Dosage: 30 MG, DAILY (1/D)
     Route: 048
  4. KETEK [Interacting]
     Route: 048
  5. SOLU-MEDROL [Concomitant]
     Route: 048

REACTIONS (4)
  - BRONCHITIS [None]
  - DRUG INTERACTION [None]
  - HAEMOPTYSIS [None]
  - INTERNATIONAL NORMALISED RATIO INCREASED [None]
